FAERS Safety Report 9678130 (Version 2)
Quarter: 2013Q4

REPORT INFORMATION
  Report Type: Report from Study
  Country: HK (occurrence: HK)
  Receive Date: 20131108
  Receipt Date: 20131119
  Transmission Date: 20140711
  Serious: Yes (Hospitalization)
  Sender: FDA-Public Use
  Company Number: HK-B.I. PHARMACEUTICALS,INC./RIDGEFIELD-2013-BI-35429HK

PATIENT
  Age: 65 Year
  Sex: Female
  Weight: 40.2 kg

DRUGS (1)
  1. AFATINIB [Suspect]
     Indication: NON-SMALL CELL LUNG CANCER
     Dosage: 40 MG
     Dates: start: 20130901, end: 20131024

REACTIONS (2)
  - Thrombocytopenia [Recovered/Resolved with Sequelae]
  - Epistaxis [Not Recovered/Not Resolved]
